FAERS Safety Report 16344122 (Version 1)
Quarter: 2019Q2

REPORT INFORMATION
  Report Type: Spontaneous
  Country: DE (occurrence: DE)
  Receive Date: 20190522
  Receipt Date: 20190522
  Transmission Date: 20190711
  Serious: Yes (Other)
  Sender: FDA-Public Use
  Company Number: DE-JNJFOC-20190521677

PATIENT
  Age: 36 Year
  Sex: Male
  Weight: 65 kg

DRUGS (4)
  1. SIMPONI [Suspect]
     Active Substance: GOLIMUMAB
     Indication: IMMUNISATION
     Route: 058
     Dates: start: 20190211, end: 20190322
  2. SIMPONI [Suspect]
     Active Substance: GOLIMUMAB
     Indication: IMMUNISATION
     Route: 058
     Dates: start: 20190322, end: 20190422
  3. SIMPONI [Suspect]
     Active Substance: GOLIMUMAB
     Indication: ANKYLOSING SPONDYLITIS
     Route: 058
     Dates: start: 20190322, end: 20190422
  4. SIMPONI [Suspect]
     Active Substance: GOLIMUMAB
     Indication: ANKYLOSING SPONDYLITIS
     Route: 058
     Dates: start: 20190211, end: 20190322

REACTIONS (16)
  - Sleep disorder [Recovered/Resolved]
  - Headache [Recovered/Resolved]
  - Hypoaesthesia [Recovered/Resolved]
  - Visual impairment [Recovered/Resolved]
  - Back pain [Recovered/Resolved]
  - Nervousness [Recovered/Resolved]
  - Dizziness [Recovered/Resolved]
  - Hyperhidrosis [Recovered/Resolved]
  - Paraesthesia [Recovered/Resolved]
  - Feeling cold [Recovered/Resolved]
  - Asthenia [Recovered/Resolved]
  - Myalgia [Recovered/Resolved]
  - Tinnitus [Recovered/Resolved]
  - Dysaesthesia [Recovered/Resolved]
  - Influenza like illness [Recovered/Resolved]
  - Erythema [Recovered/Resolved]
